FAERS Safety Report 18989798 (Version 1)
Quarter: 2021Q1

REPORT INFORMATION
  Report Type: Spontaneous
  Country: JP (occurrence: JP)
  Receive Date: 20210310
  Receipt Date: 20210310
  Transmission Date: 20210420
  Serious: Yes (Death, Other)
  Sender: FDA-Public Use
  Company Number: JP-AMGEN-JPNSP2021033929

PATIENT

DRUGS (1)
  1. BLINATUMOMAB [Suspect]
     Active Substance: BLINATUMOMAB
     Indication: ACUTE LYMPHOCYTIC LEUKAEMIA RECURRENT
     Dosage: UNK
     Route: 065

REACTIONS (7)
  - Acute lymphocytic leukaemia recurrent [Fatal]
  - Neutropenia [Unknown]
  - Graft versus host disease in skin [Recovered/Resolved]
  - Infection [Unknown]
  - Febrile neutropenia [Unknown]
  - Graft versus host disease [Unknown]
  - Cytokine release syndrome [Unknown]
